FAERS Safety Report 6035103-1 (Version None)
Quarter: 2009Q1

REPORT INFORMATION
  Report Type: 
  Country: None (occurrence: None)
  Receive Date: 20090112
  Receipt Date: 20081229
  Transmission Date: 20090719
  Serious: Yes (Death)
  Sender: FDA-Public Use
  Company Number: FR-GENENTECH-275165

PATIENT

DRUGS (1)
  1. MABTHERA [Suspect]
     Indication: NON-HODGKIN'S LYMPHOMA
     Dosage: 250 MG/M2, UNK

REACTIONS (1)
  - NEUTROPENIC SEPSIS [None]
